FAERS Safety Report 9665841 (Version 3)
Quarter: 2014Q1

REPORT INFORMATION
  Report Type: Spontaneous
  Country: US (occurrence: US)
  Receive Date: 20131104
  Receipt Date: 20140117
  Transmission Date: 20141002
  Serious: Yes (Hospitalization, Other)
  Sender: FDA-Public Use
  Company Number: US-PFIZER INC-2013310595

PATIENT
  Age: 47 Year
  Sex: Male

DRUGS (14)
  1. ONDANSETRON [Suspect]
     Indication: PRODUCT USED FOR UNKNOWN INDICATION
     Dosage: 4 MG, UNK
  2. DULOXETINE [Suspect]
     Indication: DEPRESSION
     Dosage: 120 MG, DAILY
  3. FENTANYL [Suspect]
     Indication: GENERAL ANAESTHESIA
     Dosage: TWO IV 50 MCG DOSES
     Route: 042
  4. FENTANYL [Suspect]
     Indication: PAIN
  5. TRAZODONE [Suspect]
     Indication: DEPRESSION
     Dosage: 100 MG EVERY EVENING
     Route: 065
  6. MIDAZOLAM [Concomitant]
     Indication: GENERAL ANAESTHESIA
     Dosage: UNK
     Route: 065
  7. PROPOFOL [Concomitant]
     Indication: GENERAL ANAESTHESIA
     Dosage: UNK
     Route: 065
  8. SUCCINYLCHOLINE [Concomitant]
     Indication: GENERAL ANAESTHESIA
     Dosage: UNK
     Route: 065
  9. KETAMINE [Concomitant]
     Indication: PRODUCT USED FOR UNKNOWN INDICATION
     Dosage: 20 MG, UNK
     Route: 065
  10. GLYCOPYRROLATE [Concomitant]
     Indication: MUSCLE RELAXANT THERAPY
     Dosage: 0.4 MG
     Route: 065
  11. NEOSTIGMINE [Concomitant]
     Indication: MUSCLE RELAXANT THERAPY
     Dosage: 2.5 MG
     Route: 065
  12. DESFLURANE [Concomitant]
     Indication: MAINTENANCE OF ANAESTHESIA
     Dosage: 6% - 8% INSPIRED
     Route: 065
  13. VECURONIUM [Concomitant]
     Indication: MAINTENANCE OF ANAESTHESIA
     Dosage: 15 MG IN DIVIDED DOSES
     Route: 065
  14. GABAPENTIN [Concomitant]
     Indication: PAIN
     Dosage: 2700 MG, 1X/DAY
     Route: 065

REACTIONS (1)
  - Serotonin syndrome [Recovered/Resolved]
